FAERS Safety Report 6983878-7 (Version None)
Quarter: 2010Q3

REPORT INFORMATION
  Report Type: 
  Country: None (occurrence: None)
  Receive Date: 20100914
  Receipt Date: 20090323
  Transmission Date: 20110219
  Serious: No
  Sender: FDA-Public Use
  Company Number: US-WYE-H08253709

PATIENT
  Age: 69 Year
  Sex: Male
  Weight: 73.09 kg

DRUGS (4)
  1. AXID AR [Suspect]
     Indication: GASTROOESOPHAGEAL REFLUX DISEASE
     Route: 048
     Dates: start: 20090202, end: 20090214
  2. CENTRUM SILVER [Concomitant]
  3. ACETYLSALICYLIC ACID [Concomitant]
  4. NEXIUM [Concomitant]

REACTIONS (3)
  - DRUG INEFFECTIVE [None]
  - GLOSSODYNIA [None]
  - THROAT IRRITATION [None]
